FAERS Safety Report 6955231-3 (Version None)
Quarter: 2010Q3

REPORT INFORMATION
  Report Type: 
  Country: None (occurrence: None)
  Receive Date: 20100830
  Receipt Date: 20100817
  Transmission Date: 20110219
  Serious: No
  Sender: FDA-Public Use
  Company Number: US-ELI_LILLY_AND_COMPANY-US201008005118

PATIENT
  Sex: Female

DRUGS (1)
  1. CYMBALTA [Suspect]
     Dosage: 90 MG, UNK

REACTIONS (6)
  - DECREASED APPETITE [None]
  - HEPATIC STEATOSIS [None]
  - HEPATOMEGALY [None]
  - LIVER DISORDER [None]
  - OVERWEIGHT [None]
  - PAIN [None]
